FAERS Safety Report 7796533-0 (Version None)
Quarter: 2011Q4

REPORT INFORMATION
  Report Type: 
  Country: None (occurrence: None)
  Receive Date: 20111005
  Receipt Date: 20110928
  Transmission Date: 20120403
  Serious: No
  Sender: FDA-Public Use
  Company Number: US-PFIZER INC-2011232805

PATIENT
  Sex: Female

DRUGS (1)
  1. PREMPRO [Suspect]
     Dosage: UNK
     Route: 048

REACTIONS (4)
  - HEADACHE [None]
  - DIZZINESS [None]
  - NAUSEA [None]
  - FEELING ABNORMAL [None]
